FAERS Safety Report 6942065-9 (Version None)
Quarter: 2010Q3

REPORT INFORMATION
  Report Type: 
  Country: None (occurrence: None)
  Receive Date: 20100823
  Receipt Date: 20100816
  Transmission Date: 20110219
  Serious: Yes (Hospitalization)
  Sender: FDA-Public Use
  Company Number: 003682

PATIENT
  Sex: Female

DRUGS (1)
  1. KEPPRA [Suspect]
     Indication: EPILEPSY
     Dosage: (500 MG ORAL)
     Route: 048
     Dates: start: 20090415, end: 20090502

REACTIONS (2)
  - GRAND MAL CONVULSION [None]
  - MENINGIOMA [None]
